FAERS Safety Report 24843555 (Version 1)
Quarter: 2025Q1

REPORT INFORMATION
  Report Type: Report from Study
  Country: CO (occurrence: CO)
  Receive Date: 20250115
  Receipt Date: 20250115
  Transmission Date: 20250409
  Serious: Yes (Other)
  Sender: UCB
  Company Number: CO-UCBSA-2024067134

PATIENT
  Age: 35 Year
  Sex: Female

DRUGS (4)
  1. CERTOLIZUMAB PEGOL [Suspect]
     Active Substance: CERTOLIZUMAB PEGOL
     Indication: Rheumatoid arthritis
     Dosage: 400 MILLIGRAM, EV 15 DAYS
     Route: 058
     Dates: start: 20241121
  2. PREDNISOLONE [Concomitant]
     Active Substance: PREDNISOLONE
     Indication: Product used for unknown indication
  3. CALCIUM [Concomitant]
     Active Substance: CALCIUM
     Indication: Product used for unknown indication
  4. LEFLUNOMIDE [Concomitant]
     Active Substance: LEFLUNOMIDE
     Indication: Product used for unknown indication

REACTIONS (8)
  - Vision blurred [Not Recovered/Not Resolved]
  - Respiratory distress [Not Recovered/Not Resolved]
  - Nausea [Not Recovered/Not Resolved]
  - Influenza [Not Recovered/Not Resolved]
  - Dyspepsia [Not Recovered/Not Resolved]
  - Food intolerance [Not Recovered/Not Resolved]
  - Abdominal pain upper [Not Recovered/Not Resolved]
  - Hypersensitivity [Not Recovered/Not Resolved]

NARRATIVE: CASE EVENT DATE: 20241121
